FAERS Safety Report 5111623-9 (Version None)
Quarter: 2006Q3

REPORT INFORMATION
  Report Type: 
  Country: None (occurrence: None)
  Receive Date: 20060922
  Receipt Date: 20060912
  Transmission Date: 20061208
  Serious: Yes (Hospitalization)
  Sender: FDA-Public Use
  Company Number: PHMT2006CA01792

PATIENT
  Age: 59 Year
  Sex: Female

DRUGS (4)
  1. ARIMIDEX [Concomitant]
     Dates: start: 20020101
  2. CALCIUM GLUCONATE [Concomitant]
     Dosage: 1200 MG QD
  3. VITAMIN D [Concomitant]
     Dosage: 400 IU QD
  4. PAMIDRONATE DISODIUM [Suspect]
     Indication: BREAST CANCER METASTATIC
     Dosage: 60 MG QMO
     Route: 042
     Dates: start: 20050301

REACTIONS (2)
  - NEPHROLITHIASIS [None]
  - RENAL STONE REMOVAL [None]
